FAERS Safety Report 23716678 (Version 1)
Quarter: 2024Q2

REPORT INFORMATION
  Report Type: Spontaneous
  Country: ES (occurrence: ES)
  Receive Date: 20240408
  Receipt Date: 20240408
  Transmission Date: 20240716
  Serious: Yes (Other)
  Sender: FDA-Public Use
  Company Number: ES-SUN PHARMACEUTICAL INDUSTRIES LTD-2024RR-438339

PATIENT
  Age: 40 Year
  Sex: Female

DRUGS (3)
  1. DULOXETINE [Suspect]
     Active Substance: DULOXETINE
     Indication: Anxiety
     Dosage: UNK
     Route: 065
  2. CINNARIZINE [Suspect]
     Active Substance: CINNARIZINE
     Indication: Migraine
     Dosage: UNK
     Route: 065
  3. LORAZEPAM [Suspect]
     Active Substance: LORAZEPAM
     Indication: Depression
     Dosage: UNK
     Route: 065

REACTIONS (11)
  - Irritability [Unknown]
  - Seizure [Unknown]
  - Anxiety [Unknown]
  - Depression [Unknown]
  - Condition aggravated [Unknown]
  - Agitation [Unknown]
  - Fear [Unknown]
  - Loss of consciousness [Unknown]
  - Palpitations [Unknown]
  - Tremor [Unknown]
  - Drug ineffective [Unknown]
